FAERS Safety Report 8467909-3 (Version None)
Quarter: 2012Q2

REPORT INFORMATION
  Report Type: 
  Country: None (occurrence: None)
  Receive Date: 20120626
  Receipt Date: 20120611
  Transmission Date: 20120825
  Serious: Yes (Other)
  Sender: FDA-Public Use
  Company Number: IT-BRISTOL-MYERS SQUIBB COMPANY-16683526

PATIENT
  Sex: Female

DRUGS (2)
  1. IRINOTECAN HCL [Concomitant]
     Indication: RECTAL CANCER
     Route: 042
     Dates: start: 20110622, end: 20110811
  2. ERBITUX [Suspect]
     Indication: RECTAL CANCER
     Route: 042
     Dates: start: 20110622, end: 20110811

REACTIONS (1)
  - FEMALE GENITAL TRACT FISTULA [None]
